FAERS Safety Report 18375530 (Version 2)
Quarter: 2020Q4

REPORT INFORMATION
  Report Type: Spontaneous
  Country: US (occurrence: US)
  Receive Date: 20201013
  Receipt Date: 20201120
  Transmission Date: 20210114
  Serious: No
  Sender: FDA-Public Use
  Company Number: US-ASTRAZENECA-2020SF23835

PATIENT
  Sex: Female

DRUGS (1)
  1. SYMBICORT [Suspect]
     Active Substance: BUDESONIDE\FORMOTEROL FUMARATE DIHYDRATE
     Dosage: 160-4.5 MCG UNKNOWN UNKNOWN
     Route: 055
     Dates: start: 201902

REACTIONS (3)
  - Intentional device misuse [Not Recovered/Not Resolved]
  - Respiration abnormal [Unknown]
  - Device delivery system issue [Unknown]
